FAERS Safety Report 6746219-6 (Version None)
Quarter: 2010Q2

REPORT INFORMATION
  Report Type: 
  Country: None (occurrence: None)
  Receive Date: 20100528
  Receipt Date: 20090518
  Transmission Date: 20101027
  Serious: No
  Sender: FDA-Public Use
  Company Number: US-ASTRAZENECA-2009UW12900

PATIENT
  Age: 76 Year
  Sex: Female

DRUGS (5)
  1. PRILOSEC DELAYED-RELEASED [Suspect]
     Indication: GASTROOESOPHAGEAL REFLUX DISEASE
     Route: 048
     Dates: start: 20080101
  2. METHOTREXATE [Suspect]
  3. TOPROL-XL [Concomitant]
  4. CYMBALTA [Concomitant]
  5. NITROGLYCERIN [Concomitant]

REACTIONS (2)
  - BLOOD PRESSURE DECREASED [None]
  - DRUG LEVEL INCREASED [None]
